FAERS Safety Report 7787703-6 (Version None)
Quarter: 2011Q3

REPORT INFORMATION
  Report Type: 
  Country: None (occurrence: None)
  Receive Date: 20110929
  Receipt Date: 20110920
  Transmission Date: 20111222
  Serious: Yes (Hospitalization)
  Sender: FDA-Public Use
  Company Number: FR-PFIZER INC-2011222754

PATIENT
  Age: 60 Year
  Sex: Male

DRUGS (3)
  1. CYTARABINE [Suspect]
     Indication: LEUKAEMIA
     Dosage: 1780 MG, 2X/DAY
     Route: 042
     Dates: start: 20080918, end: 20080922
  2. MITOXANTRONE [Suspect]
     Dosage: 21.4 MG, 1X/DAY
     Route: 042
     Dates: start: 20080918, end: 20080919
  3. GEMTUZUMAB OZOGAMICIN [Suspect]
     Indication: ACUTE LEUKAEMIA
     Dosage: 10.68 MG, 1X/DAY
     Route: 042
     Dates: start: 20080921, end: 20080922

REACTIONS (1)
  - ENTEROCOLITIS INFECTIOUS [None]
